FAERS Safety Report 5096097-9 (Version None)
Quarter: 2006Q3

REPORT INFORMATION
  Report Type: 
  Country: None (occurrence: None)
  Receive Date: 20060731
  Receipt Date: 20060513
  Transmission Date: 20061208
  Serious: No
  Sender: FDA-Public Use
  Company Number: 2006PV013767

PATIENT
  Age: 66 Year
  Sex: Female
  Weight: 102.0593 kg

DRUGS (11)
  1. BYETTA [Suspect]
     Indication: DIABETES MELLITUS NON-INSULIN-DEPENDENT
     Dosage: 5 MCG;BID;SC
     Route: 058
     Dates: start: 20060508
  2. GLIMEPIRIDE [Concomitant]
  3. ACTOS/USA [Concomitant]
  4. ALLERGY MEDICATION [Concomitant]
  5. THYROID SUPPLEMENT [Concomitant]
  6. NEXIUM [Concomitant]
  7. BLOOD PRESSURE MEDICATION [Concomitant]
  8. ZETIA [Concomitant]
  9. AVALIDE [Concomitant]
  10. MOBIC [Concomitant]
  11. SPIRONOLACTONE [Concomitant]

REACTIONS (5)
  - BLOOD GLUCOSE INCREASED [None]
  - DECREASED APPETITE [None]
  - INJECTION SITE BRUISING [None]
  - INJECTION SITE HAEMORRHAGE [None]
  - WEIGHT DECREASED [None]
